FAERS Safety Report 6551379-6 (Version None)
Quarter: 2010Q1

REPORT INFORMATION
  Report Type: 
  Country: None (occurrence: None)
  Receive Date: 20100126
  Receipt Date: 20100121
  Transmission Date: 20100710
  Serious: Yes (Hospitalization)
  Sender: FDA-Public Use
  Company Number: FR-ROCHE-680905

PATIENT
  Sex: Female

DRUGS (9)
  1. TAMIFLU [Suspect]
     Indication: DRUG USE FOR UNKNOWN INDICATION
     Route: 065
     Dates: start: 20091201, end: 20091201
  2. BACTRIM DS [Suspect]
     Indication: DRUG USE FOR UNKNOWN INDICATION
     Route: 048
     Dates: start: 20091117, end: 20091215
  3. ROVALCYTE [Suspect]
     Indication: DRUG USE FOR UNKNOWN INDICATION
     Route: 048
     Dates: start: 20091127, end: 20091217
  4. PURINETHOL [Suspect]
     Indication: DRUG USE FOR UNKNOWN INDICATION
     Route: 048
     Dates: start: 20091127, end: 20091215
  5. NEORAL [Concomitant]
     Route: 048
     Dates: start: 20091125, end: 20091215
  6. NEORAL [Concomitant]
     Route: 048
     Dates: start: 20091219
  7. PENTASA [Concomitant]
     Route: 048
     Dates: start: 20090701
  8. CYMEVAN [Concomitant]
     Route: 042
     Dates: start: 20091119, end: 20091127
  9. SANDIMMUNE [Concomitant]
     Dates: start: 20091117, end: 20091125

REACTIONS (5)
  - ARTHRALGIA [None]
  - HEADACHE [None]
  - MENINGISM [None]
  - PHOTOPHOBIA [None]
  - RASH MACULO-PAPULAR [None]
